FAERS Safety Report 21214303 (Version 1)
Quarter: 2022Q3

REPORT INFORMATION
  Report Type: Spontaneous
  Country: US (occurrence: US)
  Receive Date: 20220816
  Receipt Date: 20220816
  Transmission Date: 20221027
  Serious: No
  Sender: FDA-Public Use
  Company Number: US-ALFASIGMA USA, INC.-2022US000912

PATIENT

DRUGS (3)
  1. ZELNORM [Suspect]
     Active Substance: TEGASEROD MALEATE
     Indication: Gastrointestinal disorder
     Dosage: UNK
  2. ZELNORM [Suspect]
     Active Substance: TEGASEROD MALEATE
     Dosage: 6 MG, BID
  3. ROSUVASTATIN CALCIUM [Concomitant]
     Active Substance: ROSUVASTATIN CALCIUM

REACTIONS (2)
  - Off label use [Unknown]
  - Product packaging difficult to open [Unknown]
